FAERS Safety Report 11585620 (Version 1)
Quarter: 2015Q4

REPORT INFORMATION
  Report Type: Spontaneous
  Country: GB (occurrence: GB)
  Receive Date: 20151001
  Receipt Date: 20151001
  Transmission Date: 20160304
  Serious: Yes (Death, Other)
  Sender: FDA-Public Use
  Company Number: GB-FRESENIUS KABI-FK201502401

PATIENT
  Age: 23 Month
  Sex: Female

DRUGS (2)
  1. CARBOPLATIN (MANUFACTURER UNKNOWN) [Suspect]
     Active Substance: CARBOPLATIN
     Indication: ATYPICAL TERATOID/RHABDOID TUMOUR OF CNS
     Route: 042
     Dates: start: 20150401, end: 20150403
  2. THIOTEPA. [Suspect]
     Active Substance: THIOTEPA
     Indication: ATYPICAL TERATOID/RHABDOID TUMOUR OF CNS
     Route: 042
     Dates: start: 20150401, end: 20150403

REACTIONS (2)
  - Sepsis [Not Recovered/Not Resolved]
  - Systemic candida [Fatal]

NARRATIVE: CASE EVENT DATE: 20150424
